FAERS Safety Report 12100072 (Version 7)
Quarter: 2016Q2

REPORT INFORMATION
  Report Type: Report from Study
  Country: US (occurrence: US)
  Receive Date: 20160222
  Receipt Date: 20160408
  Transmission Date: 20160815
  Serious: Yes (Hospitalization, Other)
  Sender: FDA-Public Use
  Company Number: US-GILEAD-2016-0197060

PATIENT
  Age: 57 Year
  Sex: Female

DRUGS (2)
  1. AMBRISENTAN [Suspect]
     Active Substance: AMBRISENTAN
     Indication: PRODUCT USED FOR UNKNOWN INDICATION
     Dosage: 10 MG, QD
     Route: 065
     Dates: start: 20110411
  2. ADEMPAS [Concomitant]
     Active Substance: RIOCIGUAT

REACTIONS (14)
  - Oedema peripheral [Unknown]
  - Fatigue [Unknown]
  - Oedema [Not Recovered/Not Resolved]
  - Pain in extremity [Unknown]
  - Headache [Unknown]
  - Mechanical ventilation [Unknown]
  - Haemoglobin decreased [Unknown]
  - Respiratory failure [Not Recovered/Not Resolved]
  - Tremor [Unknown]
  - Sinus node dysfunction [Unknown]
  - Dyspnoea [Not Recovered/Not Resolved]
  - Right ventricular failure [Unknown]
  - Vomiting [Unknown]
  - Dialysis [Unknown]
